FAERS Safety Report 16595561 (Version 1)
Quarter: 2019Q3

REPORT INFORMATION
  Report Type: Spontaneous
  Country: DE (occurrence: DE)
  Receive Date: 20190719
  Receipt Date: 20190719
  Transmission Date: 20191004
  Serious: Yes (Death, Hospitalization)
  Sender: FDA-Public Use
  Company Number: DE-ACCORD-138625

PATIENT
  Age: 56 Year
  Sex: Male
  Weight: 145 kg

DRUGS (2)
  1. SPIRONOLACTONE. [Suspect]
     Active Substance: SPIRONOLACTONE
     Indication: PRODUCT USED FOR UNKNOWN INDICATION
     Dosage: 1-0-0-0
     Route: 048
     Dates: end: 20180521
  2. FUROSEMIDE. [Suspect]
     Active Substance: FUROSEMIDE
     Indication: PRODUCT USED FOR UNKNOWN INDICATION
     Dosage: 1-1-0-0
     Route: 048
     Dates: end: 20180521

REACTIONS (5)
  - General physical health deterioration [Unknown]
  - Oedema peripheral [Unknown]
  - Product administration error [Unknown]
  - Dyspnoea [Unknown]
  - Weight increased [Unknown]
